FAERS Safety Report 20909592 (Version 1)
Quarter: 2022Q2

REPORT INFORMATION
  Report Type: Spontaneous
  Country: CN (occurrence: None)
  Receive Date: 20220603
  Receipt Date: 20220603
  Transmission Date: 20220721
  Serious: Yes (Other)
  Sender: FDA-Public Use
  Company Number: CN-ROCHE-3106234

PATIENT
  Age: 72 Year
  Sex: Male

DRUGS (8)
  1. GAZYVA [Suspect]
     Active Substance: OBINUTUZUMAB
     Indication: B-cell lymphoma
     Route: 065
     Dates: start: 20220513
  2. GAZYVA [Suspect]
     Active Substance: OBINUTUZUMAB
     Indication: Splenic marginal zone lymphoma
  3. CYCLOPHOSPHAMIDE [Concomitant]
     Active Substance: CYCLOPHOSPHAMIDE
     Indication: B-cell lymphoma
     Dosage: 600 MG D1, 400 MG D2
     Dates: start: 20220513, end: 20220518
  4. CYCLOPHOSPHAMIDE [Concomitant]
     Active Substance: CYCLOPHOSPHAMIDE
     Indication: Splenic marginal zone lymphoma
  5. EPIRUBICIN [Concomitant]
     Active Substance: EPIRUBICIN
     Indication: B-cell lymphoma
     Dates: start: 20220513, end: 20220518
  6. EPIRUBICIN [Concomitant]
     Active Substance: EPIRUBICIN
     Indication: Splenic marginal zone lymphoma
  7. DEXAMETHASONE [Concomitant]
     Active Substance: DEXAMETHASONE
     Indication: B-cell lymphoma
     Dates: start: 20220504
  8. DEXAMETHASONE [Concomitant]
     Active Substance: DEXAMETHASONE
     Indication: Splenic marginal zone lymphoma
     Dates: start: 20220513, end: 20220518

REACTIONS (3)
  - Granulocyte count decreased [Unknown]
  - Platelet count decreased [Unknown]
  - Off label use [Unknown]
